FAERS Safety Report 5215240-1 (Version None)
Quarter: 2007Q1

REPORT INFORMATION
  Report Type: 
  Country: None (occurrence: None)
  Receive Date: 20070117
  Receipt Date: 20061220
  Transmission Date: 20070707
  Serious: Yes (Life-Threatening, Other)
  Sender: FDA-Public Use
  Company Number: PHFR2006GB03679

PATIENT
  Age: 46 Year
  Sex: Female

DRUGS (16)
  1. DICLOFENAC ( DICLOFENAC) [Suspect]
     Dosage: 75MG ONCE, INTRAVENOUS
     Route: 042
  2. AMOXICILLIN [Suspect]
     Indication: PROPHYLAXIS
     Dosage: 1G ONCE,
  3. ONDANSETRON (NGX) (ONDANSETRON) [Suspect]
     Dosage: 4MG, ONCE,
  4. EPHEDRINE SUL CAP [Suspect]
     Dosage: 6MG ONCE,
  5. FENTANYL [Suspect]
     Indication: ANAESTHESIA
  6. GLYCOPYRROLATE [Suspect]
     Indication: ANAESTHESIA REVERSAL
  7. ISOFLURANE [Suspect]
     Indication: ANAESTHESIA
  8. MORPHINE [Suspect]
     Indication: ANAESTHESIA
  9. NEOSTIGMINE (NEOSTIGMINE) [Suspect]
     Indication: ANAESTHESIA REVERSAL
  10. NITROUS OXIDE (NITROUS OXIDE) [Suspect]
     Indication: ANAESTHESIA
  11. PROPOFOL [Suspect]
     Indication: ANAESTHESIA
  12. VECURONIUM BROMIDE [Suspect]
     Indication: ANAESTHESIA
  13. CO-DYDRAMOL (DIHYDROCODEINE BITARTRATE, PARACETAMOL) [Concomitant]
  14. ESCITALOPRAM OXALATE [Concomitant]
  15. NORETHINDRONE ACETATE [Concomitant]
  16. DIAZEPAM [Concomitant]

REACTIONS (13)
  - ABDOMINAL DISTENSION [None]
  - ACTIVATED PARTIAL THROMBOPLASTIN TIME PROLONGED [None]
  - ACUTE HEPATIC FAILURE [None]
  - BLOOD LACTIC ACID INCREASED [None]
  - COAGULOPATHY [None]
  - HEPATOMEGALY [None]
  - HYPOTENSION [None]
  - OXYGEN SATURATION DECREASED [None]
  - POST PROCEDURAL COMPLICATION [None]
  - SOMNOLENCE [None]
  - STRIDOR [None]
  - TACHYCARDIA [None]
  - TACHYPNOEA [None]
